FAERS Safety Report 10196151 (Version 1)
Quarter: 2014Q2

REPORT INFORMATION
  Report Type: Spontaneous
  Country: DE (occurrence: None)
  Receive Date: 20140521
  Receipt Date: 20140521
  Transmission Date: 20141212
  Serious: Yes (Life-Threatening, Hospitalization)
  Sender: FDA-Public Use
  Company Number: 2014/032

PATIENT
  Age: 62 Year
  Sex: Female

DRUGS (5)
  1. OLANZAPINE [Suspect]
     Indication: BIPOLAR DISORDER
  2. AMISULPRIDE [Suspect]
     Indication: BIPOLAR DISORDER
  3. BIPERIDEN [Suspect]
     Indication: BIPOLAR DISORDER
  4. BENPERIDOL [Suspect]
     Indication: BIPOLAR DISORDER
  5. LITHIUM CARBONATE [Suspect]
     Indication: BIPOLAR DISORDER

REACTIONS (11)
  - Abdominal pain [None]
  - Gallbladder perforation [None]
  - Cholelithiasis [None]
  - Torsade de pointes [None]
  - Tachycardia [None]
  - Ventricular tachycardia [None]
  - Ventricular fibrillation [None]
  - Post procedural complication [None]
  - Electrocardiogram QT prolonged [None]
  - Ventricular arrhythmia [None]
  - Stress cardiomyopathy [None]
